FAERS Safety Report 13738765 (Version 1)
Quarter: 2017Q3

REPORT INFORMATION
  Report Type: Report from Study
  Country: US (occurrence: US)
  Receive Date: 20170710
  Receipt Date: 20170710
  Transmission Date: 20171127
  Serious: Yes (Other)
  Sender: FDA-Public Use
  Company Number: US-SAOL THERAPEUTICS-2017SAO00579

PATIENT

DRUGS (9)
  1. BUPIVACAINE. [Suspect]
     Active Substance: BUPIVACAINE
     Dosage: 11.2012 MG, \DAY
     Route: 037
     Dates: start: 20131229
  2. BUPIVACAINE. [Suspect]
     Active Substance: BUPIVACAINE
     Dosage: 14.3338 MG, \DAY
     Route: 037
     Dates: start: 20131229
  3. BUPIVACAINE. [Suspect]
     Active Substance: BUPIVACAINE
     Dosage: 7.0008 MG, \DAY
     Dates: start: 20131228, end: 20131229
  4. BACLOFEN. [Suspect]
     Active Substance: BACLOFEN
     Dosage: 160.02 ?G, \DAY
     Route: 037
     Dates: start: 20131229
  5. BACLOFEN. [Suspect]
     Active Substance: BACLOFEN
     Dosage: 204.77 ?G, \DAY
     Route: 037
     Dates: start: 20131229
  6. DILAUDID [Suspect]
     Active Substance: HYDROMORPHONE HYDROCHLORIDE
     Dosage: 127.980 ?G, \DAY
     Route: 037
     Dates: start: 20131229
  7. BACLOFEN. [Suspect]
     Active Substance: BACLOFEN
     Dosage: 100.01 ?G, \DAY
     Route: 037
     Dates: start: 20131228, end: 20131229
  8. DILAUDID [Suspect]
     Active Substance: HYDROMORPHONE HYDROCHLORIDE
     Dosage: 62.507 ?G, \DAY
     Route: 037
     Dates: start: 20131228, end: 20131229
  9. DILAUDID [Suspect]
     Active Substance: HYDROMORPHONE HYDROCHLORIDE
     Dosage: 100.011 ?G, \DAY
     Route: 037
     Dates: start: 20131229

REACTIONS (1)
  - Urinary retention [Recovered/Resolved]

NARRATIVE: CASE EVENT DATE: 20131230
